FAERS Safety Report 7889537-0 (Version None)
Quarter: 2011Q4

REPORT INFORMATION
  Report Type: 
  Country: None (occurrence: None)
  Receive Date: 20111103
  Receipt Date: 20100920
  Transmission Date: 20120403
  Serious: Yes (Other)
  Sender: FDA-Public Use
  Company Number: US-BRISTOL-MYERS SQUIBB COMPANY-15296585

PATIENT
  Age: 53 Year
  Sex: Female

DRUGS (3)
  1. TRAMADOL HCL [Concomitant]
  2. FOSAMAX [Concomitant]
  3. KENALOG-40 [Suspect]
     Dosage: ALSO ON 20JUL09 KENALOG 40 1.5CC
     Route: 030
     Dates: start: 20090622

REACTIONS (3)
  - INJECTION SITE ATROPHY [None]
  - DEPRESSION [None]
  - ARTHRALGIA [None]
